FAERS Safety Report 15481706 (Version 1)
Quarter: 2018Q4

REPORT INFORMATION
  Report Type: Spontaneous
  Country: US (occurrence: US)
  Receive Date: 20181010
  Receipt Date: 20181010
  Transmission Date: 20190205
  Serious: No
  Sender: FDA-Public Use
  Company Number: US-TEVA-2018-US-961066

PATIENT
  Age: 9 Year
  Sex: Male

DRUGS (1)
  1. GUANFERTAB-A [Suspect]
     Active Substance: GUANFACINE
     Indication: ATTENTION DEFICIT/HYPERACTIVITY DISORDER
     Route: 065

REACTIONS (3)
  - Irritability [Unknown]
  - Abnormal behaviour [Unknown]
  - Panic attack [Unknown]

NARRATIVE: CASE EVENT DATE: 2018
